FAERS Safety Report 14099423 (Version 1)
Quarter: 2017Q4

REPORT INFORMATION
  Report Type: Spontaneous
  Country: US (occurrence: US)
  Receive Date: 20171017
  Receipt Date: 20171017
  Transmission Date: 20180321
  Serious: No
  Sender: FDA-Public Use
  Company Number: US-CELGENEUS-USA-20171004643

PATIENT
  Age: 58 Year
  Sex: Male

DRUGS (1)
  1. OTEZLA [Suspect]
     Active Substance: APREMILAST
     Indication: PSORIATIC ARTHROPATHY
     Dosage: 60 MILLIGRAM
     Route: 048
     Dates: start: 20170710

REACTIONS (9)
  - Pyrexia [Unknown]
  - Fatigue [Unknown]
  - Abdominal pain upper [Unknown]
  - Chills [Unknown]
  - Somnolence [Unknown]
  - Abdominal pain lower [Unknown]
  - Back pain [Unknown]
  - Dysuria [Unknown]
  - Pain [Unknown]

NARRATIVE: CASE EVENT DATE: 20171014
